FAERS Safety Report 19787516 (Version 2)
Quarter: 2022Q4

REPORT INFORMATION
  Report Type: Spontaneous
  Country: US (occurrence: US)
  Receive Date: 20210903
  Receipt Date: 20221020
  Transmission Date: 20230112
  Serious: No
  Sender: FDA-Public Use
  Company Number: US-TERSERA THERAPEUTICS LLC-2020TRS001920

PATIENT

DRUGS (6)
  1. ZOLADEX [Suspect]
     Active Substance: GOSERELIN ACETATE
     Indication: Invasive breast carcinoma
     Dosage: UNK
     Route: 065
     Dates: start: 2013
  2. ZOLADEX [Suspect]
     Active Substance: GOSERELIN ACETATE
     Indication: Ovarian disorder
  3. ZOLADEX [Suspect]
     Active Substance: GOSERELIN ACETATE
     Indication: Intraductal proliferative breast lesion
  4. ZOLADEX [Suspect]
     Active Substance: GOSERELIN ACETATE
     Indication: Invasive breast carcinoma
     Dosage: UNK
     Route: 065
  5. ZOLADEX [Suspect]
     Active Substance: GOSERELIN ACETATE
     Indication: Ovarian disorder
  6. ZOLADEX [Suspect]
     Active Substance: GOSERELIN ACETATE
     Indication: Intraductal proliferative breast lesion

REACTIONS (1)
  - No adverse event [Unknown]
